FAERS Safety Report 7413877-2 (Version None)
Quarter: 2011Q2

REPORT INFORMATION
  Report Type: 
  Country: None (occurrence: None)
  Receive Date: 20110414
  Receipt Date: 20110406
  Transmission Date: 20111010
  Serious: Yes (Hospitalization, Other)
  Sender: FDA-Public Use
  Company Number: US-BIOGENIDEC-2009BI041643

PATIENT
  Age: 52 Year
  Sex: Female

DRUGS (12)
  1. TYSABRI [Suspect]
     Indication: MULTIPLE SCLEROSIS
     Route: 042
     Dates: start: 20080908, end: 20091116
  2. LEXAPRO [Concomitant]
  3. SYNTHROID [Concomitant]
  4. POTASSIUM [Concomitant]
  5. ASCORBIC ACID [Concomitant]
  6. VITAMIN D + CALCIUM [Concomitant]
  7. VITAMIN B COMPLEX CAP [Concomitant]
  8. FISH OIL [Concomitant]
  9. COUMADIN [Concomitant]
  10. IRON SULFATETHIAMIN COMPOUND TAB [Concomitant]
  11. TYSABRI [Suspect]
     Route: 042
     Dates: start: 20100810
  12. MULTI-VITAMIN [Concomitant]

REACTIONS (2)
  - OVARIAN CANCER [None]
  - BREAST CANCER IN SITU [None]
